FAERS Safety Report 15652283 (Version 1)
Quarter: 2018Q4

REPORT INFORMATION
  Report Type: Spontaneous
  Country: US (occurrence: US)
  Receive Date: 20181123
  Receipt Date: 20181123
  Transmission Date: 20190205
  Serious: No
  Sender: FDA-Public Use
  Company Number: US-FOUNDATIONCONSUMERHC-2018-US-013028

PATIENT
  Age: 25 Year
  Sex: Female
  Weight: 57.15 kg

DRUGS (3)
  1. CONCERTA [Concomitant]
     Active Substance: METHYLPHENIDATE HYDROCHLORIDE
     Route: 048
  2. PLAN B ONE-STEP [Suspect]
     Active Substance: LEVONORGESTREL
     Indication: POST COITAL CONTRACEPTION
     Dosage: 1.5MG
     Route: 048
     Dates: start: 20180710, end: 20180710
  3. ABILIFY [Concomitant]
     Active Substance: ARIPIPRAZOLE
     Route: 048

REACTIONS (4)
  - Abdominal distension [Not Recovered/Not Resolved]
  - Abdominal pain lower [Recovered/Resolved]
  - Vaginal haemorrhage [Recovered/Resolved]
  - Vaginal discharge [Not Recovered/Not Resolved]

NARRATIVE: CASE EVENT DATE: 20180718
